FAERS Safety Report 7360001-0 (Version None)
Quarter: 2011Q1

REPORT INFORMATION
  Report Type: 
  Country: None (occurrence: None)
  Receive Date: 20110317
  Receipt Date: 20110311
  Transmission Date: 20110831
  Serious: Yes (Other)
  Sender: FDA-Public Use
  Company Number: US-AMGEN-USASP2011013837

PATIENT
  Age: 48 Year
  Sex: Female

DRUGS (6)
  1. LEUCOVORIN                         /00566701/ [Concomitant]
     Dosage: UNK
     Dates: start: 20110309
  2. THYROXINE [Concomitant]
  3. COUMADIN [Concomitant]
  4. ATIVAN [Concomitant]
  5. NEULASTA [Suspect]
     Indication: CHEMOTHERAPY
     Dates: start: 20110310
  6. FLUOROURACIL [Concomitant]
     Dosage: UNK
     Dates: start: 20110309

REACTIONS (3)
  - INFECTION [None]
  - WHITE BLOOD CELL COUNT INCREASED [None]
  - INFUSION SITE THROMBOSIS [None]
